FAERS Safety Report 6673273-2 (Version None)
Quarter: 2010Q2

REPORT INFORMATION
  Report Type: 
  Country: None (occurrence: None)
  Receive Date: 20100408
  Receipt Date: 20100406
  Transmission Date: 20101027
  Serious: Yes (Death)
  Sender: FDA-Public Use
  Company Number: DE-ELI_LILLY_AND_COMPANY-DE201004001174

PATIENT

DRUGS (1)
  1. GEMCITABINE HCL [Suspect]
     Indication: BLADDER CANCER

REACTIONS (1)
  - SEPSIS [None]
